FAERS Safety Report 11686144 (Version 2)
Quarter: 2015Q4

REPORT INFORMATION
  Report Type: Report from Study
  Country: BR (occurrence: BR)
  Receive Date: 20151030
  Receipt Date: 20151118
  Transmission Date: 20160304
  Serious: Yes (Other)
  Sender: FDA-Public Use
  Company Number: PHHY2015BR140430

PATIENT
  Sex: Female
  Weight: 47 kg

DRUGS (2)
  1. GILENYA [Suspect]
     Active Substance: FINGOLIMOD HYDROCHLORIDE
     Indication: MULTIPLE SCLEROSIS
     Dosage: 0.5 MG, QD (14 CS AG)
     Route: 048
  2. AMITRIPTYLINE [Concomitant]
     Active Substance: AMITRIPTYLINE
     Indication: MULTIPLE SCLEROSIS
     Dosage: 75 MG, QHS (STARTED MORE THAN 10 YEARS AGO)
     Route: 048

REACTIONS (6)
  - Hypoaesthesia [Unknown]
  - Abdominal pain [Not Recovered/Not Resolved]
  - Leiomyoma [Recovered/Resolved]
  - Benign ovarian tumour [Not Recovered/Not Resolved]
  - Tumour invasion [Not Recovered/Not Resolved]
  - Weight decreased [Not Recovered/Not Resolved]
